FAERS Safety Report 25383131 (Version 1)
Quarter: 2025Q2

REPORT INFORMATION
  Report Type: Spontaneous
  Country: US (occurrence: US)
  Receive Date: 20250602
  Receipt Date: 20250602
  Transmission Date: 20250717
  Serious: Yes (Other)
  Sender: SANOFI AVENTIS
  Company Number: US-SA-2025SA154727

PATIENT
  Age: 72 Year
  Sex: Male

DRUGS (1)
  1. REZUROCK [Suspect]
     Active Substance: BELUMOSUDIL
     Indication: Chronic graft versus host disease
     Dosage: 200 MG, BID
     Route: 048
     Dates: start: 20250508

REACTIONS (5)
  - Renal impairment [Unknown]
  - Splenomegaly [Unknown]
  - Fluid imbalance [Unknown]
  - Skin discolouration [Unknown]
  - Inappropriate schedule of product administration [Unknown]

NARRATIVE: CASE EVENT DATE: 20250508
